FAERS Safety Report 11009032 (Version 3)
Quarter: 2015Q2

REPORT INFORMATION
  Report Type: Report from Study
  Country: US (occurrence: US)
  Receive Date: 20150410
  Receipt Date: 20150603
  Transmission Date: 20150821
  Serious: Yes (Hospitalization, Other)
  Sender: FDA-Public Use
  Company Number: US-SANOFI-AVENTIS-2013SA034547

PATIENT
  Age: 69 Year
  Sex: Female

DRUGS (2)
  1. SYNTHROID [Concomitant]
     Active Substance: LEVOTHYROXINE SODIUM
  2. AUBAGIO [Suspect]
     Active Substance: TERIFLUNOMIDE
     Indication: MULTIPLE SCLEROSIS
     Route: 048
     Dates: start: 20130129

REACTIONS (11)
  - Cardiac operation [Unknown]
  - Fracture [Unknown]
  - Wheelchair user [Unknown]
  - Musculoskeletal stiffness [Not Recovered/Not Resolved]
  - Rehabilitation therapy [Unknown]
  - Fall [Unknown]
  - Skin disorder [Not Recovered/Not Resolved]
  - Ligament sprain [Unknown]
  - Drug dose omission [Unknown]
  - Oral herpes [Not Recovered/Not Resolved]
  - Acne [Not Recovered/Not Resolved]

NARRATIVE: CASE EVENT DATE: 201303
